FAERS Safety Report 9219837 (Version 2)
Quarter: 2014Q1

REPORT INFORMATION
  Report Type: Report from Study
  Country: JP (occurrence: JP)
  Receive Date: 20130409
  Receipt Date: 20140106
  Transmission Date: 20141002
  Serious: Yes (Hospitalization, Other)
  Sender: FDA-Public Use
  Company Number: JP-ROCHE-1209749

PATIENT
  Sex: Female
  Weight: 60 kg

DRUGS (22)
  1. OMALIZUMAB [Suspect]
     Indication: ASTHMA
     Route: 058
     Dates: start: 20110526
  2. OMALIZUMAB [Suspect]
     Route: 065
     Dates: start: 20110728
  3. OMALIZUMAB [Suspect]
     Route: 065
     Dates: start: 20111117
  4. OMALIZUMAB [Suspect]
     Route: 065
     Dates: start: 20111214
  5. ADOAIR [Concomitant]
  6. SINGULAIR [Concomitant]
     Route: 065
     Dates: start: 20101202
  7. PREDNISOLON [Concomitant]
     Route: 065
     Dates: start: 20101202
  8. PREDNISOLON [Concomitant]
     Route: 065
     Dates: end: 20110429
  9. PREDNISOLON [Concomitant]
     Route: 065
     Dates: end: 20110728
  10. SULTANOL [Concomitant]
     Route: 065
     Dates: start: 20101202
  11. ITRACONAZOLE [Concomitant]
     Route: 065
     Dates: start: 20110526
  12. FAMOTIDINE [Concomitant]
     Route: 065
     Dates: start: 20110526
  13. CALONAL [Concomitant]
     Route: 065
     Dates: start: 20110609
  14. MOHRUS [Concomitant]
     Route: 065
     Dates: start: 20110609
  15. SAWACILLIN [Concomitant]
     Route: 065
     Dates: start: 20110729
  16. AUGMENTIN [Concomitant]
     Route: 065
     Dates: start: 20110729, end: 20110802
  17. LOXOPROFEN [Concomitant]
     Route: 065
     Dates: start: 20110802, end: 20110802
  18. REBAMIPIDE [Concomitant]
     Route: 065
     Dates: start: 20110802
  19. SPIRIVA [Concomitant]
     Route: 065
     Dates: start: 20111104
  20. PRIVINA [Concomitant]
  21. VFEND [Concomitant]
     Route: 065
     Dates: start: 20111025
  22. VFEND [Concomitant]
     Route: 065
     Dates: start: 20111101

REACTIONS (6)
  - Bronchopulmonary aspergillosis [Unknown]
  - Lung infection [Recovering/Resolving]
  - White blood cell count increased [Unknown]
  - C-reactive protein increased [Unknown]
  - Asthma [Recovering/Resolving]
  - Pyrexia [Recovered/Resolved]
